FAERS Safety Report 9139233 (Version 1)
Quarter: 2013Q1

REPORT INFORMATION
  Report Type: Spontaneous
  Country: US (occurrence: US)
  Receive Date: 20130305
  Receipt Date: 20130305
  Transmission Date: 20140127
  Serious: Yes (Hospitalization, Other)
  Sender: FDA-Public Use
  Company Number: PHEH2013US004812

PATIENT
  Age: 60 Year
  Sex: Female

DRUGS (18)
  1. RITALIN [Suspect]
     Dosage: 10 MG, QID
  2. RITALIN [Suspect]
     Dosage: 5 MG, QID
  3. ATENOLOL [Concomitant]
  4. CARAFATE [Concomitant]
  5. PEPCID [Concomitant]
  6. VITAMIN E [Concomitant]
  7. ECHINACEA [Concomitant]
  8. VITAMIN C [Concomitant]
  9. VITAMIN B 12 [Concomitant]
  10. POTASSIUM GLUCONATE [Concomitant]
  11. COENZYME Q10 [Concomitant]
  12. CRANBERRY [Concomitant]
  13. CHOLEST-OFF [Concomitant]
  14. D3-2000 [Concomitant]
  15. ASPIRIN [Concomitant]
  16. FOLIC ACID [Concomitant]
  17. VITAMIN A [Concomitant]
  18. ZOFRAN [Concomitant]

REACTIONS (6)
  - Myocardial infarction [Unknown]
  - Migraine [Unknown]
  - Constipation [Unknown]
  - Vomiting [Unknown]
  - Abdominal pain [Unknown]
  - Nausea [Unknown]
